FAERS Safety Report 4718010-3 (Version None)
Quarter: 2005Q3

REPORT INFORMATION
  Report Type: 
  Country: None (occurrence: None)
  Receive Date: 20050718
  Receipt Date: 20050310
  Transmission Date: 20060218
  Serious: No
  Sender: FDA-Public Use
  Company Number: 2005000530

PATIENT
  Age: 87 Year
  Sex: Female
  Weight: 49.4421 kg

DRUGS (8)
  1. TARCEVA [Suspect]
     Indication: NON-SMALL CELL LUNG CANCER
     Dosage: 150 MG (QD), ORAL
     Route: 048
     Dates: start: 20050208
  2. CELEBREX [Concomitant]
  3. ABLBUTEROL INHALER [Concomitant]
  4. SPIRIVA [Concomitant]
  5. ACIPHEX [Concomitant]
  6. CENTRUM SILVER (CENTRUM SILVER) [Concomitant]
  7. CALTRATE (CALCIUM CARBONATE) [Concomitant]
  8. GLUCOSAMINE (GLUCOSAMINE) [Concomitant]

REACTIONS (6)
  - ALOPECIA [None]
  - BURNING SENSATION [None]
  - DIARRHOEA [None]
  - DRY SKIN [None]
  - ORAL DISCOMFORT [None]
  - SKIN TIGHTNESS [None]
